FAERS Safety Report 24760506 (Version 2)
Quarter: 2025Q1

REPORT INFORMATION
  Report Type: Spontaneous
  Country: JP (occurrence: JP)
  Receive Date: 20241220
  Receipt Date: 20250218
  Transmission Date: 20250408
  Serious: Yes (Hospitalization)
  Sender: ALEXION PHARMACEUTICALS
  Company Number: JP-ASTRAZENECA-240141649_032420_P_1

PATIENT

DRUGS (2)
  1. TEZSPIRE [Suspect]
     Active Substance: TEZEPELUMAB-EKKO
  2. TEZSPIRE [Suspect]
     Active Substance: TEZEPELUMAB-EKKO

REACTIONS (2)
  - Respiratory symptom [Unknown]
  - Treatment noncompliance [Unknown]
